FAERS Safety Report 8029151-X (Version None)
Quarter: 2012Q1

REPORT INFORMATION
  Report Type: 
  Country: None (occurrence: None)
  Receive Date: 20120106
  Receipt Date: 20120102
  Transmission Date: 20120608
  Serious: Yes (Hospitalization, Other)
  Sender: FDA-Public Use
  Company Number: PHEH2012US000605

PATIENT
  Sex: Female

DRUGS (12)
  1. AZITHROMYCIN [Concomitant]
  2. CLARINEX [Concomitant]
  3. SYMBICORT [Concomitant]
  4. TOBI [Suspect]
     Indication: CYSTIC FIBROSIS
     Dosage: 60 MG/ML, BID
     Dates: start: 20100422
  5. SINGULAIR [Concomitant]
  6. VITAMIN D [Concomitant]
  7. COLISTIMETHATE SODIUM [Concomitant]
  8. PULMOZYME [Concomitant]
  9. ALBUTEROL [Concomitant]
  10. OMEPRAZOLE [Concomitant]
  11. CALCIUM ACETATE [Concomitant]
  12. CELEBREX [Concomitant]

REACTIONS (1)
  - INFECTIVE PULMONARY EXACERBATION OF CYSTIC FIBROSIS [None]
